FAERS Safety Report 7364429-4 (Version None)
Quarter: 2011Q1

REPORT INFORMATION
  Report Type: 
  Country: None (occurrence: None)
  Receive Date: 20110321
  Receipt Date: 20110316
  Transmission Date: 20110831
  Serious: Yes (Other)
  Sender: FDA-Public Use
  Company Number: US-PFIZER INC-2011058680

PATIENT
  Sex: Female

DRUGS (2)
  1. DILANTIN-125 [Suspect]
     Dosage: 100 MG, UNK
  2. PHENYTOIN [Suspect]
     Dosage: UNK

REACTIONS (3)
  - DRUG INEFFECTIVE [None]
  - SURGERY [None]
  - DRUG INTOLERANCE [None]
